FAERS Safety Report 7633122-2 (Version None)
Quarter: 2011Q3

REPORT INFORMATION
  Report Type: 
  Country: None (occurrence: None)
  Receive Date: 20110725
  Receipt Date: 20110713
  Transmission Date: 20111222
  Serious: Yes (Hospitalization, Other)
  Sender: FDA-Public Use
  Company Number: US-ROCHE-752240

PATIENT
  Sex: Male
  Weight: 79.4 kg

DRUGS (4)
  1. ACCUTANE [Suspect]
     Route: 065
     Dates: start: 19860501, end: 19861101
  2. MARIJUANA [Concomitant]
     Dates: start: 19830101, end: 20020101
  3. COCAINE [Concomitant]
     Dates: start: 19850101, end: 19870101
  4. ACCUTANE [Suspect]
     Indication: ACNE
     Route: 065
     Dates: start: 19840501, end: 19841101

REACTIONS (8)
  - IRRITABLE BOWEL SYNDROME [None]
  - INFLAMMATORY BOWEL DISEASE [None]
  - CROHN'S DISEASE [None]
  - ABDOMINAL PAIN [None]
  - RECTAL HAEMORRHAGE [None]
  - NECK INJURY [None]
  - INTESTINAL OBSTRUCTION [None]
  - BACK INJURY [None]
